FAERS Safety Report 7637185-X (Version None)
Quarter: 2011Q3

REPORT INFORMATION
  Report Type: 
  Country: None (occurrence: None)
  Receive Date: 20110726
  Receipt Date: 20110712
  Transmission Date: 20111222
  Serious: Yes (Congenital Anomaly)
  Sender: FDA-Public Use
  Company Number: PHHY2011FR62098

PATIENT
  Sex: Female

DRUGS (1)
  1. TEGRETOL [Suspect]
     Indication: EPILEPSY
     Dosage: UNK UKN, UNK
     Route: 064
     Dates: start: 20090101

REACTIONS (2)
  - CEREBRAL VENTRICLE DILATATION [None]
  - MATERNAL EXPOSURE DURING PREGNANCY [None]
